FAERS Safety Report 7486477-6 (Version None)
Quarter: 2011Q2

REPORT INFORMATION
  Report Type: 
  Country: None (occurrence: None)
  Receive Date: 20110517
  Receipt Date: 20110506
  Transmission Date: 20111010
  Serious: Yes (Hospitalization, Other)
  Sender: FDA-Public Use
  Company Number: JP-UCBSA-009753

PATIENT
  Sex: Female

DRUGS (13)
  1. CIMZIA [Suspect]
     Route: 058
     Dates: end: 20110401
  2. KETOPROFEN [Concomitant]
     Dosage: ADEQUATE DOSE AS NEEDED
     Dates: start: 20090724, end: 20100819
  3. BETAMETHASONE_D-CHLORPHENIRAMINE MALEATE [Concomitant]
  4. LANSOPRAZOLE [Concomitant]
     Dates: start: 20100901
  5. INDOMETHACIN SODIUM [Concomitant]
     Dosage: ADEQUATE DOSE AS NEEDED
     Dates: start: 20090918, end: 20101231
  6. CIMZIA [Suspect]
     Indication: RHEUMATOID ARTHRITIS
     Dosage: 275-08-003
     Route: 058
     Dates: start: 20090820, end: 20090101
  7. ATORVASTATIN CALCIUM [Concomitant]
     Dates: start: 20101210
  8. CIMZIA [Suspect]
     Route: 058
     Dates: start: 20091211
  9. BETAMETHASONE_D-CHLORPHENIRAMINE MALEATE [Concomitant]
  10. MIZORIBINE [Concomitant]
     Dates: start: 20110304, end: 20110415
  11. REBAMIPIDE [Concomitant]
  12. DICLOFENAC SODIUM [Concomitant]
     Dates: start: 20090707
  13. PREGABALIN [Concomitant]
     Dates: start: 20110304

REACTIONS (4)
  - INTERVERTEBRAL DISC PROTRUSION [None]
  - LUNG INFECTION [None]
  - LUMBAR SPINAL STENOSIS [None]
  - INTERSTITIAL LUNG DISEASE [None]
